FAERS Safety Report 6101208-X (Version None)
Quarter: 2009Q1

REPORT INFORMATION
  Report Type: 
  Country: None (occurrence: None)
  Receive Date: 20090304
  Receipt Date: 20090225
  Transmission Date: 20090719
  Serious: Yes (Hospitalization)
  Sender: FDA-Public Use
  Company Number: US-ALLERGAN-0902496US

PATIENT
  Sex: Female

DRUGS (4)
  1. BOTOX [Suspect]
     Indication: MUSCLE SPASTICITY
     Dosage: 300 UNITS, SINGLE
     Route: 030
     Dates: start: 20090213, end: 20090213
  2. NORCO [Concomitant]
     Dosage: 10/325, TID
  3. NEURONTIN [Concomitant]
     Dosage: 300 MG, QD
  4. TRAMADOL HCL [Concomitant]
     Dosage: 50 MG, Q 4-6
     Route: 048

REACTIONS (1)
  - CELLULITIS [None]
